FAERS Safety Report 8209086-X (Version None)
Quarter: 2012Q1

REPORT INFORMATION
  Report Type: 
  Country: None (occurrence: None)
  Receive Date: 20120314
  Receipt Date: 20120229
  Transmission Date: 20120608
  Serious: Yes (Hospitalization)
  Sender: FDA-Public Use
  Company Number: DE-CELGENEUS-062-50794-12012994

PATIENT
  Age: 72 Year
  Sex: Male
  Weight: 76.1 kg

DRUGS (7)
  1. OMEKETA [Concomitant]
     Route: 065
  2. RAMIPRIL [Concomitant]
     Dosage: 5/25 MG
     Route: 065
  3. CIPROFLOXACIN [Concomitant]
     Route: 065
     Dates: end: 20120130
  4. FOLSAN [Concomitant]
     Route: 065
  5. METOCLOPRAMIDE [Concomitant]
     Dosage: 3X15 DROPS
     Route: 065
  6. IBUPROFEN [Concomitant]
     Route: 065
  7. VIDAZA [Suspect]
     Dosage: 75 MILLIGRAM/SQ. METER
     Route: 058
     Dates: start: 20111228, end: 20120105

REACTIONS (1)
  - PNEUMONIA PRIMARY ATYPICAL [None]
